FAERS Safety Report 25494246 (Version 1)
Quarter: 2025Q2

REPORT INFORMATION
  Report Type: Report from Study
  Country: DE (occurrence: DE)
  Receive Date: 20250630
  Receipt Date: 20250630
  Transmission Date: 20250716
  Serious: Yes (Other)
  Sender: TEVA
  Company Number: DE-002147023-NVSC2025DE084409

PATIENT
  Sex: Female
  Weight: 91 kg

DRUGS (2)
  1. ANASTROZOLE [Suspect]
     Active Substance: ANASTROZOLE
     Indication: Hormone receptor positive HER2 negative breast cancer
     Dosage: 1 MG, QD (TOTAL DAILY DOSE)
     Route: 048
     Dates: start: 20250312
  2. KISQALI [Suspect]
     Active Substance: RIBOCICLIB SUCCINATE
     Indication: Hormone receptor positive HER2 negative breast cancer
     Dosage: 400 MG (21 DAYS DAILY INTAKE, 7 DAYS PAUSE)
     Route: 048
     Dates: start: 20250312

REACTIONS (2)
  - Liver disorder [Unknown]
  - Alanine aminotransferase increased [Unknown]

NARRATIVE: CASE EVENT DATE: 20250521
